FAERS Safety Report 22599962 (Version 1)
Quarter: 2023Q2

REPORT INFORMATION
  Report Type: Spontaneous
  Country: EG (occurrence: None)
  Receive Date: 20230614
  Receipt Date: 20230614
  Transmission Date: 20230722
  Serious: Yes (Death)
  Sender: FDA-Public Use
  Company Number: 2023A135230

PATIENT
  Sex: Female

DRUGS (3)
  1. IMFINZI [Suspect]
     Active Substance: DURVALUMAB
     Indication: Red blood cell sedimentation rate decreased
     Route: 042
  2. PACLITAXEL [Concomitant]
     Active Substance: PACLITAXEL
     Dosage: 30MG EVERY 21 DAYS
  3. ETOPOSIDE [Concomitant]
     Active Substance: ETOPOSIDE
     Dosage: EVERY 21 DAYS

REACTIONS (1)
  - Death [Fatal]
